FAERS Safety Report 8487868-7 (Version None)
Quarter: 2012Q3

REPORT INFORMATION
  Report Type: 
  Country: None (occurrence: None)
  Receive Date: 20120705
  Receipt Date: 20120626
  Transmission Date: 20120928
  Serious: Yes (Hospitalization)
  Sender: FDA-Public Use
  Company Number: US-BAYER-2012-053227

PATIENT
  Age: 46 Year
  Sex: Female
  Weight: 49.433 kg

DRUGS (12)
  1. BUPROPION HCL [Concomitant]
     Indication: DEPRESSION
     Dosage: UNK
     Dates: start: 20100101
  2. VENLAFAXINE [Concomitant]
     Indication: DEPRESSION
     Dosage: UNK
     Dates: start: 20100329
  3. WELLBUTRIN [Concomitant]
     Indication: DEPRESSION
  4. CIPROFLOXACIN HYDROCHLORIDE [Concomitant]
     Indication: PHARYNGITIS STREPTOCOCCAL
     Dosage: UNK
     Dates: start: 20060101, end: 20110101
  5. SERTRALINE HYDROCHLORIDE [Concomitant]
     Indication: DEPRESSION
     Dosage: UNK
     Dates: start: 20080101
  6. YAZ [Suspect]
     Indication: PREMENSTRUAL SYNDROME
     Dosage: UNK
     Dates: start: 20090612, end: 20100512
  7. SUMATRIPTAN [Concomitant]
     Dosage: UNK
     Dates: start: 20090101, end: 20110101
  8. YAZ [Suspect]
     Indication: ACNE CYSTIC
  9. FROVA [Concomitant]
     Indication: MIGRAINE
     Dosage: UNK
     Dates: start: 20100101, end: 20110101
  10. EFFEXOR XR [Concomitant]
     Indication: ANXIETY
     Dosage: UNK
     Dates: start: 20090101, end: 20100101
  11. SPIRONOLACTONE [Concomitant]
     Indication: DEPRESSION
     Dosage: UNK
     Dates: start: 20100101
  12. NITROFURANTOIN [Concomitant]
     Indication: ANTIBIOTIC THERAPY
     Dosage: UNK
     Dates: start: 20100101, end: 20110101

REACTIONS (7)
  - PAIN [None]
  - INJURY [None]
  - PULMONARY EMBOLISM [None]
  - PULMONARY THROMBOSIS [None]
  - DYSPNOEA [None]
  - CHEST PAIN [None]
  - DEEP VEIN THROMBOSIS [None]
